FAERS Safety Report 4521118-9 (Version None)
Quarter: 2004Q4

REPORT INFORMATION
  Report Type: 
  Country: None (occurrence: None)
  Receive Date: 20041208
  Receipt Date: 20041130
  Transmission Date: 20050328
  Serious: Yes (Death)
  Sender: FDA-Public Use
  Company Number: AU-ROCHE-387671

PATIENT
  Age: 24 Year
  Sex: Male

DRUGS (4)
  1. ROACCUTANE [Suspect]
     Indication: ACNE
     Route: 048
     Dates: start: 20040223, end: 20040622
  2. ROACCUTANE [Suspect]
     Route: 048
     Dates: start: 20020615, end: 20020615
  3. GEMCITABINE HYDROCHLORIDE [Concomitant]
  4. ANABOLIC STEROIDS [Suspect]
     Indication: DRUG USE FOR UNKNOWN INDICATION
     Route: 065

REACTIONS (3)
  - CONVULSION [None]
  - DEEP VEIN THROMBOSIS [None]
  - PULMONARY EMBOLISM [None]
